FAERS Safety Report 5312631-5 (Version None)
Quarter: 2007Q2

REPORT INFORMATION
  Report Type: 
  Country: None (occurrence: None)
  Receive Date: 20070430
  Receipt Date: 20070105
  Transmission Date: 20071010
  Serious: No
  Sender: FDA-Public Use
  Company Number: 2007UW00324

PATIENT
  Age: 57 Year
  Sex: Male
  Weight: 86.2 kg

DRUGS (3)
  1. NEXIUM [Suspect]
     Indication: DYSPEPSIA
     Route: 048
     Dates: start: 20020101
  2. FINASTERIDE [Concomitant]
  3. FLOMAX [Concomitant]

REACTIONS (1)
  - BLOOD CALCIUM DECREASED [None]
